FAERS Safety Report 12898955 (Version 1)
Quarter: 2016Q4

REPORT INFORMATION
  Report Type: Spontaneous
  Country: US (occurrence: US)
  Receive Date: 20161101
  Receipt Date: 20161101
  Transmission Date: 20170207
  Serious: No
  Sender: FDA-Public Use
  Company Number: US-BAYER-2016-207810

PATIENT
  Age: 51 Year
  Sex: Female
  Weight: 60.77 kg

DRUGS (3)
  1. MIRALAX [Suspect]
     Active Substance: POLYETHYLENE GLYCOL 3350
     Dosage: 1 DF, QD
  2. ATENOLOL. [Concomitant]
     Active Substance: ATENOLOL
  3. MIRALAX [Suspect]
     Active Substance: POLYETHYLENE GLYCOL 3350
     Dosage: 1 DF, QOD
     Route: 048

REACTIONS (2)
  - Product use issue [Unknown]
  - Product quality issue [Unknown]
